FAERS Safety Report 6152593-4 (Version None)
Quarter: 2009Q2

REPORT INFORMATION
  Report Type: 
  Country: None (occurrence: None)
  Receive Date: 20090413
  Receipt Date: 20090330
  Transmission Date: 20091009
  Serious: Yes (Other)
  Sender: FDA-Public Use
  Company Number: US-ELI_LILLY_AND_COMPANY-US200812002495

PATIENT
  Age: 43 Year
  Sex: Male

DRUGS (5)
  1. CYMBALTA [Suspect]
     Indication: DEPRESSION
     Dosage: 60 MG, DAILY (1/D)
     Route: 048
  2. REBIF [Concomitant]
     Indication: MULTIPLE SCLEROSIS
     Dosage: UNK, 3/W
  3. PLAVIX [Concomitant]
     Dosage: 75 MG, UNK
  4. NOVOLOG [Concomitant]
  5. OTHER ANTIINFLAMMATORY AGENTS IN COMB. [Concomitant]
     Indication: MULTIPLE SCLEROSIS

REACTIONS (7)
  - BLOOD IRON INCREASED [None]
  - DRUG INEFFECTIVE [None]
  - HEPATIC ENZYME INCREASED [None]
  - HEPATIC MASS [None]
  - HEPATIC STEATOSIS [None]
  - VOMITING [None]
  - WEIGHT DECREASED [None]
